FAERS Safety Report 6029854-2 (Version None)
Quarter: 2009Q1

REPORT INFORMATION
  Report Type: 
  Country: None (occurrence: None)
  Receive Date: 20090106
  Receipt Date: 20090106
  Transmission Date: 20090719
  Serious: No
  Sender: FDA-Public Use
  Company Number: None

PATIENT
  Age: 76 Year
  Sex: Female
  Weight: 95.2554 kg

DRUGS (2)
  1. BYETTA [Suspect]
     Indication: DIABETES MELLITUS
     Dosage: 10MCG BID S/C
     Route: 058
     Dates: start: 20080806
  2. BYETTA [Suspect]
     Indication: DIABETES MELLITUS
     Dosage: 10MCG BID S/C
     Route: 058
     Dates: start: 20080808

REACTIONS (10)
  - ABDOMINAL PAIN [None]
  - DIARRHOEA [None]
  - DIZZINESS [None]
  - DYSSTASIA [None]
  - FLANK PAIN [None]
  - HYPERHIDROSIS [None]
  - MUSCLE SPASMS [None]
  - SKIN WARM [None]
  - TREMOR [None]
  - VOMITING [None]
